FAERS Safety Report 9099318 (Version 2)
Quarter: 2013Q1

REPORT INFORMATION
  Report Type: Spontaneous
  Country: US (occurrence: US)
  Receive Date: 20130211
  Receipt Date: 20130211
  Transmission Date: 20140127
  Serious: Yes (Hospitalization)
  Sender: FDA-Public Use
  Company Number: US-ROCHE-1178707

PATIENT
  Age: 56 Year
  Sex: Female
  Weight: 72.64 kg

DRUGS (1)
  1. XOLAIR [Suspect]
     Indication: ASTHMA
     Route: 058
     Dates: start: 201207, end: 201212

REACTIONS (2)
  - Pain in extremity [Unknown]
  - Hypoaesthesia [Unknown]
